FAERS Safety Report 19702661 (Version 1)
Quarter: 2021Q3

REPORT INFORMATION
  Report Type: Report from Study
  Country: None (occurrence: US)
  Receive Date: 20210815
  Receipt Date: 20210815
  Transmission Date: 20211014
  Serious: Yes (Death)
  Sender: FDA-Public Use
  Company Number: US-ABBVIE-21K-163-4038854-00

PATIENT
  Sex: Male

DRUGS (1)
  1. HUMIRA [Suspect]
     Active Substance: ADALIMUMAB
     Indication: PSORIASIS
     Route: 058
     Dates: start: 201912, end: 202101

REACTIONS (4)
  - Renal impairment [Fatal]
  - Hepatic enzyme increased [Fatal]
  - Psoriasis [Unknown]
  - Cardiac failure [Fatal]

NARRATIVE: CASE EVENT DATE: 2021
